FAERS Safety Report 5560790-1 (Version None)
Quarter: 2007Q4

REPORT INFORMATION
  Report Type: 
  Country: None (occurrence: None)
  Receive Date: 20071215
  Receipt Date: 20071126
  Transmission Date: 20080405
  Serious: No
  Sender: FDA-Public Use
  Company Number: US-ABBOTT-07P-163-0425915-00

PATIENT
  Sex: Female
  Weight: 49.94 kg

DRUGS (5)
  1. HUMIRA [Suspect]
     Indication: CROHN'S DISEASE
     Route: 058
     Dates: start: 20071123, end: 20071123
  2. ENTECORT [Concomitant]
     Indication: CROHN'S DISEASE
  3. 6MP [Concomitant]
     Indication: CROHN'S DISEASE
  4. ONDANSETRON [Concomitant]
     Indication: NAUSEA
     Route: 048
  5. MESALAMINE [Concomitant]
     Indication: CROHN'S DISEASE

REACTIONS (3)
  - HEADACHE [None]
  - NAUSEA [None]
  - VOMITING [None]
